FAERS Safety Report 9744431 (Version 2)
Quarter: 2015Q1

REPORT INFORMATION
  Report Type: Spontaneous
  Country: DK (occurrence: DK)
  Receive Date: 20131210
  Receipt Date: 20150312
  Transmission Date: 20150721
  Serious: Yes (Hospitalization)
  Sender: FDA-Public Use
  Company Number: DK-B.I. PHARMACEUTICALS,INC./RIDGEFIELD-2013-BI-40546DB

PATIENT
  Age: 79 Year
  Sex: Female

DRUGS (9)
  1. LAMISIL [Concomitant]
     Active Substance: TERBINAFINE HYDROCHLORIDE
     Indication: LOCALISED INFECTION
     Route: 061
     Dates: start: 20131115, end: 20131126
  2. PERSANTIN RETARD [Suspect]
     Active Substance: DIPYRIDAMOLE
     Indication: ATRIAL FIBRILLATION
     Dosage: 400 MG
     Route: 048
     Dates: end: 20131126
  3. PANODIL [Concomitant]
     Active Substance: ACETAMINOPHEN
     Indication: PAIN
     Route: 065
  4. CIPROFLOXACIN. [Concomitant]
     Active Substance: CIPROFLOXACIN
     Indication: URINARY TRACT INFECTION
     Route: 065
     Dates: start: 20131117, end: 20131126
  5. LAKTULOSE ^SAD^ [Concomitant]
     Indication: CONSTIPATION
     Dosage: STRENGTH: 667 MG/ML
     Route: 048
     Dates: start: 201202
  6. MANDOLGIN [Concomitant]
     Active Substance: TRAMADOL
     Indication: PAIN
     Route: 065
  7. MOVICOL [Concomitant]
     Active Substance: POLYETHYLENE GLYCOL 3350\POTASSIUM CHLORIDE\SODIUM BICARBONATE\SODIUM CHLORIDE
     Indication: CONSTIPATION
     Route: 048
  8. HJERDYL [Suspect]
     Active Substance: ASPIRIN
     Indication: ATRIAL FIBRILLATION
     Dosage: 75 MG
     Route: 048
     Dates: end: 20131126
  9. PALEXIA [Concomitant]
     Active Substance: TAPENTADOL HYDROCHLORIDE
     Indication: PAIN
     Route: 048

REACTIONS (2)
  - Cerebral haemorrhage [Recovered/Resolved with Sequelae]
  - Confusional state [Recovered/Resolved]

NARRATIVE: CASE EVENT DATE: 201311
